FAERS Safety Report 10677171 (Version 1)
Quarter: 2014Q4

REPORT INFORMATION
  Report Type: Spontaneous
  Country: CH (occurrence: CH)
  Receive Date: 20141226
  Receipt Date: 20141226
  Transmission Date: 20150529
  Serious: Yes (Other)
  Sender: FDA-Public Use
  Company Number: PHHY2014CH166856

PATIENT
  Age: 40 Year
  Sex: Female

DRUGS (8)
  1. HUMIRA [Suspect]
     Active Substance: ADALIMUMAB
     Indication: SPONDYLITIS
     Dosage: UNK
     Route: 058
     Dates: start: 201305, end: 201309
  2. SIMPONI [Suspect]
     Active Substance: GOLIMUMAB
     Indication: SPONDYLITIS
     Dosage: UNK
     Route: 058
     Dates: start: 201310, end: 201310
  3. INSULIN [Concomitant]
     Active Substance: INSULIN NOS
     Indication: GESTATIONAL DIABETES
     Dosage: UNK
     Route: 058
  4. VOLTAREN [Suspect]
     Active Substance: DICLOFENAC SODIUM
     Indication: SPONDYLITIS
     Dosage: UNK
     Route: 048
     Dates: start: 2013
  5. ARCOXIA [Suspect]
     Active Substance: ETORICOXIB
     Indication: SPONDYLITIS
     Dosage: 60 MG, QD
     Route: 048
     Dates: start: 2013
  6. DAFALGAN [Suspect]
     Active Substance: ACETAMINOPHEN
     Indication: SPONDYLITIS
     Dosage: UNK
     Route: 048
     Dates: start: 2013
  7. ZALDIAR [Suspect]
     Active Substance: ACETAMINOPHEN\TRAMADOL HYDROCHLORIDE
     Indication: SPONDYLITIS
     Dosage: UNK
     Route: 048
     Dates: start: 2013
  8. DEROXAT [Suspect]
     Active Substance: PAROXETINE HYDROCHLORIDE
     Indication: PRODUCT USED FOR UNKNOWN INDICATION
     Dosage: UNK UNK, QD,
     Route: 048
     Dates: start: 2013

REACTIONS (1)
  - Exposure during pregnancy [Recovered/Resolved]

NARRATIVE: CASE EVENT DATE: 20131015
